FAERS Safety Report 25946990 (Version 2)
Quarter: 2025Q4

REPORT INFORMATION
  Report Type: Spontaneous
  Country: GB (occurrence: GB)
  Receive Date: 20251022
  Receipt Date: 20251107
  Transmission Date: 20260118
  Serious: Yes (Other)
  Sender: TEVA
  Company Number: GB-TEVA-VS-3383241

PATIENT
  Age: 18 Year
  Sex: Female

DRUGS (4)
  1. PREGABALIN [Suspect]
     Active Substance: PREGABALIN
     Indication: Cystitis interstitial
     Dosage: LATER PRESCRIBED?UP TO 600 MG DAILY BY PHYSICIAN
     Route: 065
  2. PREGABALIN [Suspect]
     Active Substance: PREGABALIN
     Indication: Cystitis interstitial
     Route: 065
  3. KETAMINE [Suspect]
     Active Substance: KETAMINE
     Indication: Substance use
     Dosage: 3.5-5  G
     Route: 048
  4. KETAMINE [Suspect]
     Active Substance: KETAMINE
     Indication: Substance use
     Dosage: EVERY FEW MONTHS
     Route: 048

REACTIONS (6)
  - Intentional product misuse [Unknown]
  - Drug dependence [Unknown]
  - Drug abuse [Unknown]
  - Cystitis interstitial [Recovering/Resolving]
  - General physical health deterioration [Unknown]
  - Mental disorder [Unknown]
